FAERS Safety Report 19909050 (Version 1)
Quarter: 2021Q4

REPORT INFORMATION
  Report Type: Spontaneous
  Country: US (occurrence: US)
  Receive Date: 20211001
  Receipt Date: 20211001
  Transmission Date: 20220304
  Serious: No
  Sender: FDA-Public Use
  Company Number: US-AMARIN PHARMA, INC.-2020AMR000870

PATIENT
  Age: 75 Year
  Sex: Male
  Weight: 67.19 kg

DRUGS (5)
  1. VASCEPA [Suspect]
     Active Substance: ICOSAPENT ETHYL
     Indication: Blood cholesterol increased
     Route: 048
     Dates: end: 20201212
  2. RAMIPRIL [Concomitant]
     Active Substance: RAMIPRIL
     Indication: Cardiac disorder
  3. CARVEDILOL [Concomitant]
     Active Substance: CARVEDILOL
     Indication: Cardiac disorder
  4. ROSUVASTATIN [Concomitant]
     Active Substance: ROSUVASTATIN
     Indication: Cardiac disorder
  5. DOXAZOSIN [Concomitant]
     Active Substance: DOXAZOSIN MESYLATE
     Indication: Prostatic disorder

REACTIONS (3)
  - Nausea [Recovered/Resolved]
  - Therapy interrupted [Unknown]
  - Product odour abnormal [Unknown]

NARRATIVE: CASE EVENT DATE: 20201212
